FAERS Safety Report 26098689 (Version 2)
Quarter: 2025Q4

REPORT INFORMATION
  Report Type: Report from Study
  Country: JP (occurrence: JP)
  Receive Date: 20251127
  Receipt Date: 20251224
  Transmission Date: 20260118
  Serious: Yes (Death, Other)
  Sender: IPSEN BIOPHARMACEUTICALS, INC.
  Company Number: JP-IPSEN Group, Research and Development-2025-28999

PATIENT
  Age: 7 Year
  Sex: Female

DRUGS (2)
  1. TAZVERIK [Suspect]
     Active Substance: TAZEMETOSTAT HYDROBROMIDE
     Indication: Atypical teratoid/rhabdoid tumour of CNS
     Dosage: DOSE UNKNOWN
     Route: 048
     Dates: start: 20230419, end: 20231224
  2. TAZVERIK [Suspect]
     Active Substance: TAZEMETOSTAT HYDROBROMIDE
     Indication: Off label use

REACTIONS (23)
  - Atypical teratoid/rhabdoid tumour of CNS [Fatal]
  - Hypothyroidism [Not Recovered/Not Resolved]
  - Blood creatinine increased [Recovered/Resolved]
  - Upper respiratory tract infection [Recovered/Resolved]
  - Blood creatine phosphokinase increased [Recovered/Resolved]
  - Platelet count decreased [Recovered/Resolved]
  - Blood creatinine increased [Recovered/Resolved]
  - Proteinuria [Recovered/Resolved]
  - Dehydration [Recovered/Resolved]
  - Vomiting [Recovering/Resolving]
  - Nausea [Recovering/Resolving]
  - Weight decreased [Recovered/Resolved]
  - Blood creatine phosphokinase increased [Recovered/Resolved]
  - Blood creatinine increased [Recovered/Resolved]
  - Proteinuria [Recovered/Resolved]
  - Platelet count decreased [Recovered/Resolved]
  - Blood chloride increased [Recovered/Resolved]
  - Blood creatinine increased [Recovered/Resolved]
  - Conjunctivitis [Recovering/Resolving]
  - Blood creatinine increased [Recovered/Resolved]
  - Blood chloride increased [Recovered/Resolved]
  - COVID-19 [Recovered/Resolved]
  - Off label use [Unknown]

NARRATIVE: CASE EVENT DATE: 20230426
